FAERS Safety Report 6599077-7 (Version None)
Quarter: 2010Q1

REPORT INFORMATION
  Report Type: 
  Country: None (occurrence: None)
  Receive Date: 20100224
  Receipt Date: 20090814
  Transmission Date: 20100710
  Serious: No
  Sender: FDA-Public Use
  Company Number: US-BRISTOL-MYERS SQUIBB COMPANY-14742118

PATIENT
  Age: 64 Year
  Sex: Female

DRUGS (2)
  1. GLUCOPHAGE [Suspect]
  2. LANTUS [Suspect]
     Indication: TYPE 2 DIABETES MELLITUS
     Dosage: 1 DF = 20 UNITS SOLN FOR INJ
     Route: 058

REACTIONS (1)
  - WEIGHT INCREASED [None]
